FAERS Safety Report 23682418 (Version 4)
Quarter: 2025Q3

REPORT INFORMATION
  Report Type: Spontaneous
  Country: EU (occurrence: EU)
  Receive Date: 20240328
  Receipt Date: 20250819
  Transmission Date: 20251020
  Serious: Yes (Other)
  Sender: ROCHE
  Company Number: EU-ROCHE-3530995

PATIENT
  Age: 11 Year
  Sex: Female

DRUGS (1)
  1. EVRYSDI [Suspect]
     Active Substance: RISDIPLAM
     Indication: Spinal muscular atrophy
     Route: 065
     Dates: start: 20220718

REACTIONS (19)
  - Clostridial infection [Unknown]
  - Colitis [Unknown]
  - Pyrexia [Unknown]
  - Inflammation [Unknown]
  - Cholangitis [Unknown]
  - Pancreatitis acute [Unknown]
  - Hypernatraemia [Unknown]
  - Hypokalaemia [Unknown]
  - Genital infection [Unknown]
  - Anal infection [Unknown]
  - Gastrointestinal candidiasis [Unknown]
  - Biliary tract disorder [Unknown]
  - Pancreatitis relapsing [Unknown]
  - Genital candidiasis [Unknown]
  - Anal candidiasis [Unknown]
  - Biliary dilatation [Unknown]
  - Inflammatory bowel disease [Unknown]
  - Cholangitis [Unknown]
  - Pancreatitis [Unknown]

NARRATIVE: CASE EVENT DATE: 20240101
